FAERS Safety Report 5671662-6 (Version None)
Quarter: 2008Q1

REPORT INFORMATION
  Report Type: 
  Country: None (occurrence: None)
  Receive Date: 20080318
  Receipt Date: 20080306
  Transmission Date: 20080703
  Serious: No
  Sender: FDA-Public Use
  Company Number: US-BAXTER-2008BH002031

PATIENT
  Age: 6 Day
  Sex: Female
  Weight: 1 kg

DRUGS (1)
  1. DEXTROSE 10% [Suspect]
     Indication: DRUG USE FOR UNKNOWN INDICATION
     Route: 042
     Dates: start: 20080306

REACTIONS (1)
  - BLOOD GLUCOSE DECREASED [None]
